FAERS Safety Report 17110783 (Version 1)
Quarter: 2019Q4

REPORT INFORMATION
  Report Type: Spontaneous
  Country: US (occurrence: US)
  Receive Date: 20191204
  Receipt Date: 20191204
  Transmission Date: 20200122
  Serious: Yes (Hospitalization)
  Sender: FDA-Public Use
  Company Number: US-VERTEX PHARMACEUTICALS-2019-012009

PATIENT
  Age: 17 Year
  Sex: Male

DRUGS (1)
  1. SYMDEKO [Suspect]
     Active Substance: IVACAFTOR\TEZACAFTOR
     Indication: CYSTIC FIBROSIS
     Dosage: 100 MG TEZA/ 150 MG IVA AM AND 150 MG IVA PM
     Route: 048
     Dates: start: 20180926

REACTIONS (1)
  - Distal intestinal obstruction syndrome [Unknown]

NARRATIVE: CASE EVENT DATE: 20191122
